FAERS Safety Report 8902486 (Version 1)
Quarter: 2012Q4

REPORT INFORMATION
  Report Type: 
  Country: JP (occurrence: JP)
  Receive Date: 20121112
  Receipt Date: 20121112
  Transmission Date: 20130627
  Serious: Yes (Hospitalization)
  Sender: FDA-Public Use
  Company Number: JP-ELI_LILLY_AND_COMPANY-JP201207003996

PATIENT
  Age: 85 Year
  Sex: Male

DRUGS (2)
  1. FORTEO [Suspect]
     Indication: OSTEOPOROSIS
     Dosage: UNK
     Route: 058
     Dates: start: 201206, end: 20121016
  2. LEUPLIN [Concomitant]
     Indication: PROSTATE CANCER
     Route: 058

REACTIONS (3)
  - Hernia [Unknown]
  - Drug interaction [Unknown]
  - Rash [Unknown]
